FAERS Safety Report 8952644 (Version 4)
Quarter: 2013Q1

REPORT INFORMATION
  Report Type: Spontaneous
  Country: JP (occurrence: JP)
  Receive Date: 20121205
  Receipt Date: 20130206
  Transmission Date: 20140127
  Serious: Yes (Life-Threatening, Hospitalization)
  Sender: FDA-Public Use
  Company Number: JP-ASTRAZENECA-2012SE90013

PATIENT
  Age: 87 Year
  Sex: Female
  Weight: 37 kg

DRUGS (1)
  1. XYLOCAINE INJECTION WITH EPINEPHRINE [Suspect]
     Indication: INFILTRATION ANAESTHESIA
     Route: 050
     Dates: start: 20121024, end: 20121024

REACTIONS (1)
  - Hyperthermia malignant [Recovered/Resolved]
